FAERS Safety Report 13412760 (Version 1)
Quarter: 2017Q2

REPORT INFORMATION
  Report Type: Spontaneous
  Country: US (occurrence: US)
  Receive Date: 20170406
  Receipt Date: 20170406
  Transmission Date: 20170830
  Serious: No
  Sender: FDA-Public Use
  Company Number: None

PATIENT
  Age: 26 Year
  Sex: Female
  Weight: 63 kg

DRUGS (7)
  1. ANTIOXIDANTS C + E [Concomitant]
  2. B COMPLEX WITH FOLIC ACID [Concomitant]
  3. CLONAZEPAM. [Concomitant]
     Active Substance: CLONAZEPAM
  4. FISH OIL [Concomitant]
     Active Substance: FISH OIL
  5. WOMEN^S DAILY MULTIVITAMIN [Concomitant]
  6. LAYOLIS FE CHEW TABLETS [Concomitant]
  7. DEXTROAMPHET SACCHARAT, AMPHET ASPARTATE, DEXTROAMPHET SULFATE AND AMPHET SULFAT [Suspect]
     Active Substance: AMPHETAMINE ASPARTATE\AMPHETAMINE SULFATE\DEXTROAMPHETAMINE SACCHARATE\DEXTROAMPHETAMINE SULFATE
     Indication: ATTENTION DEFICIT/HYPERACTIVITY DISORDER
     Dosage: ?          QUANTITY:90 TABLET(S);?
     Route: 048
     Dates: start: 20170404, end: 20170406

REACTIONS (11)
  - Product substitution issue [None]
  - Dry mouth [None]
  - Memory impairment [None]
  - Poor personal hygiene [None]
  - Restlessness [None]
  - Joint stiffness [None]
  - Eructation [None]
  - Muscle tightness [None]
  - Constipation [None]
  - Local swelling [None]
  - Gastrointestinal disorder [None]
